FAERS Safety Report 6230462-9 (Version None)
Quarter: 2009Q2

REPORT INFORMATION
  Report Type: 
  Country: None (occurrence: None)
  Receive Date: 20090615
  Receipt Date: 20090422
  Transmission Date: 20091009
  Serious: No
  Sender: FDA-Public Use
  Company Number: US-ABBOTT-09P-163-0569271-00

PATIENT
  Sex: Female
  Weight: 55.842 kg

DRUGS (7)
  1. TRILIPIX [Suspect]
     Indication: DRUG USE FOR UNKNOWN INDICATION
     Route: 048
     Dates: start: 20090402, end: 20090419
  2. ZYRTEC [Suspect]
     Indication: PARANASAL SINUS HYPERSECRETION
     Route: 048
     Dates: start: 20090414
  3. VOLTAREN [Suspect]
     Indication: ARTHRALGIA
     Route: 048
     Dates: start: 20090414
  4. FOSAMAX [Concomitant]
     Indication: OSTEOPOROSIS
     Route: 048
     Dates: start: 20090301
  5. ATENOLOL [Concomitant]
     Indication: DRUG USE FOR UNKNOWN INDICATION
     Route: 048
  6. TRIAMTERENE AND HYDROCHLOROTHIAZIDE [Concomitant]
     Indication: DRUG USE FOR UNKNOWN INDICATION
     Dosage: FORM: 37.5/25
     Route: 048
  7. XANAX [Concomitant]
     Indication: DRUG USE FOR UNKNOWN INDICATION
     Route: 048

REACTIONS (4)
  - ARTHRALGIA [None]
  - COUGH [None]
  - PARANASAL SINUS HYPERSECRETION [None]
  - RASH [None]
